FAERS Safety Report 5456480-6 (Version None)
Quarter: 2007Q3

REPORT INFORMATION
  Report Type: 
  Country: None (occurrence: None)
  Receive Date: 20070918
  Receipt Date: 20070904
  Transmission Date: 20080115
  Serious: Yes (Other)
  Sender: FDA-Public Use
  Company Number: US-KINGPHARMUSA00001-K200701143

PATIENT

DRUGS (1)
  1. SKELAXIN [Suspect]
     Dosage: UNK, SINGLE
     Dates: start: 20070505, end: 20070505

REACTIONS (3)
  - DRUG INEFFECTIVE [None]
  - NAUSEA [None]
  - NON-HODGKIN'S LYMPHOMA [None]
